FAERS Safety Report 9385901 (Version 2)
Quarter: 2013Q3

REPORT INFORMATION
  Report Type: Spontaneous
  Country: US (occurrence: US)
  Receive Date: 20130705
  Receipt Date: 20130917
  Transmission Date: 20140515
  Serious: Yes (Hospitalization)
  Sender: FDA-Public Use
  Company Number: US-BRISTOL-MYERS SQUIBB COMPANY-19051903

PATIENT
  Age: 70 Year
  Sex: Male
  Weight: 95 kg

DRUGS (14)
  1. COUMADIN TABS 5 MG [Suspect]
     Indication: AORTIC VALVE DISEASE
     Route: 048
     Dates: start: 2002, end: 20130524
  2. DILTIAZEM HCL [Concomitant]
     Indication: HYPERTENSION
     Route: 048
     Dates: start: 2008
  3. CITALOPRAM HYDROBROMIDE [Concomitant]
     Indication: ANXIETY
     Route: 048
     Dates: start: 2008
  4. GEMFIBROZIL [Concomitant]
     Indication: HYPERLIPIDAEMIA
     Route: 048
     Dates: start: 2003
  5. LASIX [Concomitant]
     Indication: HYPERTENSION
     Route: 048
     Dates: start: 2002
  6. ALENDRONATE [Concomitant]
     Indication: OSTEOPOROSIS
     Route: 048
     Dates: start: 2009
  7. PRILOSEC [Concomitant]
     Indication: IRRITABLE BOWEL SYNDROME
     Route: 048
     Dates: start: 2006
  8. MUCINEX [Concomitant]
     Indication: CHRONIC OBSTRUCTIVE PULMONARY DISEASE
     Route: 048
     Dates: start: 2008
  9. SALINE [Concomitant]
     Indication: CHRONIC OBSTRUCTIVE PULMONARY DISEASE
     Route: 045
  10. MULTIVITAMIN [Concomitant]
     Indication: MEDICAL DIET
     Route: 048
     Dates: start: 1992
  11. VITAMIN C [Concomitant]
     Indication: MEDICAL DIET
     Route: 048
     Dates: start: 1992
  12. IRON [Concomitant]
     Indication: ANAEMIA
     Route: 048
     Dates: start: 1992
  13. TUMS [Concomitant]
     Indication: DYSPEPSIA
     Route: 048
     Dates: start: 20130320
  14. SYMBICORT [Concomitant]
     Indication: CHRONIC OBSTRUCTIVE PULMONARY DISEASE
     Dosage: 1DF=640/18MCG AND 320/9 MCG
     Route: 045
     Dates: start: 2008

REACTIONS (3)
  - Gastrointestinal haemorrhage [Recovered/Resolved]
  - Coagulopathy [Recovered/Resolved]
  - Temporomandibular joint syndrome [Recovered/Resolved]
